FAERS Safety Report 9913481 (Version 1)
Quarter: 2014Q1

REPORT INFORMATION
  Report Type: Spontaneous
  Country: US (occurrence: None)
  Receive Date: 20140212
  Receipt Date: 20140212
  Transmission Date: 20141002
  Serious: Yes (Death)
  Sender: FDA-Public Use
  Company Number: AUR-APL-2014-01110

PATIENT
  Age: 55 Year
  Sex: Female

DRUGS (6)
  1. COCAINE (COCAINE) [Suspect]
     Indication: PRODUCT USED FOR UNKNOWN INDICATION
  2. ACETAMINOPHEN (PARACETAMOL) [Suspect]
     Indication: PRODUCT USED FOR UNKNOWN INDICATION
  3. OXYCODONE (OXYCODONE) [Suspect]
     Indication: PRODUCT USED FOR UNKNOWN INDICATION
  4. SERTRALINE (SERTRALINE) [Suspect]
     Indication: PRODUCT USED FOR UNKNOWN INDICATION
  5. LAMOTRIGINE (LAMOTRIGINE) [Suspect]
     Indication: PRODUCT USED FOR UNKNOWN INDICATION
  6. HEROIN (DIAMORPHINE) (DIAMORPHINE) [Suspect]
     Indication: PRODUCT USED FOR UNKNOWN INDICATION
     Route: 048

REACTIONS (2)
  - Toxicity to various agents [None]
  - Drug abuse [None]
